FAERS Safety Report 8406092-7 (Version None)
Quarter: 2012Q2

REPORT INFORMATION
  Report Type: 
  Country: None (occurrence: None)
  Receive Date: 20120604
  Receipt Date: 20120530
  Transmission Date: 20120825
  Serious: Yes (Other)
  Sender: FDA-Public Use
  Company Number: US-AMGEN-KDL391477

PATIENT
  Age: 32 Year
  Sex: Female

DRUGS (7)
  1. FOLIC ACID [Concomitant]
     Dosage: UNK, QD
  2. ENBREL [Suspect]
     Dosage: 50 MG, QWK
     Route: 058
     Dates: start: 20080101, end: 20090501
  3. PREDNISONE TAB [Concomitant]
     Indication: RHEUMATOID ARTHRITIS
     Dosage: 20 MG, QD
     Route: 048
     Dates: start: 20090701, end: 20100801
  4. CALCIUM [Concomitant]
     Dosage: UNK, QD
  5. PRENATAL VITAMINS                  /01549301/ [Concomitant]
     Dosage: UNK UNK, QD
     Route: 048
  6. ENBREL [Suspect]
     Indication: RHEUMATOID ARTHRITIS
     Dosage: 50 MG, QWK
     Route: 058
  7. VITAMIN D [Concomitant]
     Dosage: UNK, QD

REACTIONS (9)
  - RHEUMATOID ARTHRITIS [None]
  - DIABETES MELLITUS [None]
  - PREMATURE RUPTURE OF MEMBRANES [None]
  - GESTATIONAL DIABETES [None]
  - WEIGHT GAIN POOR [None]
  - ACTIVITIES OF DAILY LIVING IMPAIRED [None]
  - ARTHRALGIA [None]
  - PREMATURE DELIVERY [None]
  - GAIT DISTURBANCE [None]
